FAERS Safety Report 7815546-3 (Version None)
Quarter: 2011Q4

REPORT INFORMATION
  Report Type: 
  Country: None (occurrence: None)
  Receive Date: 20111014
  Receipt Date: 20111005
  Transmission Date: 20120403
  Serious: Yes (Hospitalization)
  Sender: FDA-Public Use
  Company Number: US-US-EMD SERONO, INC.-7068200

PATIENT
  Sex: Female

DRUGS (9)
  1. ALEVE [Concomitant]
     Indication: PREMEDICATION
  2. REBIF [Suspect]
     Indication: MULTIPLE SCLEROSIS
     Route: 058
     Dates: start: 20110523
  3. INSULIN [Concomitant]
     Indication: DIABETES MELLITUS
  4. REBIF [Suspect]
     Route: 058
     Dates: end: 20110901
  5. REBIF [Suspect]
     Route: 058
     Dates: end: 20110901
  6. BACLOFEN [Concomitant]
     Indication: MUSCLE SPASMS
  7. HYDROCHLOROTHIAZIDE [Concomitant]
     Indication: FLUID RETENTION
  8. CYMBALTA [Concomitant]
     Indication: NEURALGIA
  9. NEURONTIN [Concomitant]
     Indication: NEURALGIA

REACTIONS (9)
  - PYREXIA [None]
  - INSOMNIA [None]
  - ASTHENIA [None]
  - FALL [None]
  - CHILLS [None]
  - CENTRAL NERVOUS SYSTEM LESION [None]
  - THROMBOSIS [None]
  - INFLUENZA [None]
  - CONTUSION [None]
